FAERS Safety Report 7924081-3 (Version None)
Quarter: 2011Q4

REPORT INFORMATION
  Report Type: 
  Country: None (occurrence: None)
  Receive Date: 20111117
  Receipt Date: 20110214
  Transmission Date: 20120403
  Serious: No
  Sender: FDA-Public Use
  Company Number: US-AMGEN-USASP2011003227

PATIENT
  Sex: Female

DRUGS (2)
  1. TREXALL [Concomitant]
     Dosage: 1 MG, QWK
     Dates: start: 20100101
  2. ENBREL [Suspect]
     Indication: RHEUMATOID ARTHRITIS
     Dosage: 50 MG, QWK
     Dates: start: 20000101

REACTIONS (15)
  - SWELLING FACE [None]
  - BRONCHITIS [None]
  - EYE SWELLING [None]
  - FOOT DEFORMITY [None]
  - INJECTION SITE PAIN [None]
  - OEDEMA PERIPHERAL [None]
  - INFLUENZA [None]
  - RASH [None]
  - INJECTION SITE RASH [None]
  - DECREASED APPETITE [None]
  - RHEUMATOID ARTHRITIS [None]
  - HYPOAESTHESIA [None]
  - DIARRHOEA [None]
  - VOMITING [None]
  - BURNING SENSATION [None]
